FAERS Safety Report 7505608-2 (Version None)
Quarter: 2011Q2

REPORT INFORMATION
  Report Type: 
  Country: None (occurrence: None)
  Receive Date: 20110526
  Receipt Date: 20110520
  Transmission Date: 20111010
  Serious: Yes (Death, Life-Threatening, Hospitalization, Other)
  Sender: FDA-Public Use
  Company Number: GB-PFIZER INC-2011086930

PATIENT
  Age: 73 Year
  Sex: Male

DRUGS (8)
  1. SUNITINIB MALATE [Suspect]
     Dosage: 50 MG, 1X/DAY
     Route: 048
     Dates: end: 20101001
  2. FINASTERIDE [Concomitant]
  3. SUNITINIB MALATE [Suspect]
     Dosage: 25 MG, 1X/DAY
     Route: 048
  4. RANITIDINE [Concomitant]
  5. DIPYRIDAMOLE [Concomitant]
  6. ACETYLSALICYLIC ACID [Concomitant]
  7. FUROSEMIDE [Concomitant]
  8. SUNITINIB MALATE [Suspect]
     Indication: METASTATIC RENAL CELL CARCINOMA
     Dosage: 50 MG, 1X/DAY, SCHEDULE 4/2
     Route: 048
     Dates: start: 20081215

REACTIONS (11)
  - GASTROOESOPHAGITIS [None]
  - DISEASE PROGRESSION [None]
  - GASTROINTESTINAL ULCER [None]
  - THROMBOCYTOPENIA [None]
  - PERFORMANCE STATUS DECREASED [None]
  - NEPHROPATHY TOXIC [None]
  - HAEMOPTYSIS [None]
  - METASTATIC RENAL CELL CARCINOMA [None]
  - ABDOMINAL DISCOMFORT [None]
  - ASPERGILLOSIS [None]
  - PNEUMONIA [None]
